FAERS Safety Report 19142202 (Version 1)
Quarter: 2021Q2

REPORT INFORMATION
  Report Type: Spontaneous
  Country: FR (occurrence: FR)
  Receive Date: 20210415
  Receipt Date: 20210415
  Transmission Date: 20210717
  Serious: Yes (Hospitalization)
  Sender: FDA-Public Use
  Company Number: FR-PURDUE-USA-2021-0243706

PATIENT
  Age: 95 Year
  Sex: Male

DRUGS (1)
  1. OXYNORMORO [Suspect]
     Active Substance: OXYCODONE HYDROCHLORIDE
     Indication: PAIN
     Dosage: 20 MG, DAILY, STRENGTH 20 MG
     Route: 048
     Dates: start: 20210205, end: 20210208

REACTIONS (4)
  - Disorientation [Recovered/Resolved]
  - Aggression [Recovered/Resolved]
  - General physical health deterioration [Recovered/Resolved]
  - Confusional state [Recovered/Resolved]

NARRATIVE: CASE EVENT DATE: 20210208
